FAERS Safety Report 16533410 (Version 3)
Quarter: 2019Q3

REPORT INFORMATION
  Report Type: Spontaneous
  Country: JP (occurrence: JP)
  Receive Date: 20190705
  Receipt Date: 20190806
  Transmission Date: 20191004
  Serious: Yes (Hospitalization)
  Sender: FDA-Public Use
  Company Number: JP-PFIZER INC-2019287933

PATIENT
  Age: 42 Year
  Sex: Male

DRUGS (5)
  1. AMOXAPINE. [Concomitant]
     Active Substance: AMOXAPINE
     Dosage: UNK
     Route: 065
  2. FLUVOXAMINE MALEATE. [Concomitant]
     Active Substance: FLUVOXAMINE MALEATE
     Dosage: UNK
     Route: 065
  3. DIAZEPAM. [Concomitant]
     Active Substance: DIAZEPAM
     Dosage: UNK
     Route: 065
  4. SODIUM VALPROATE [Concomitant]
     Active Substance: VALPROATE SODIUM
     Dosage: UNK
     Route: 065
  5. FOSPHENYTOIN SODIUM. [Suspect]
     Active Substance: FOSPHENYTOIN SODIUM
     Indication: STATUS EPILEPTICUS
     Dosage: UNK
     Route: 065

REACTIONS (2)
  - Neuroleptic malignant syndrome [Unknown]
  - Acute kidney injury [Recovering/Resolving]
